FAERS Safety Report 17693544 (Version 5)
Quarter: 2022Q1

REPORT INFORMATION
  Report Type: Spontaneous
  Country: US (occurrence: US)
  Receive Date: 20200422
  Receipt Date: 20220328
  Transmission Date: 20220424
  Serious: Yes (Hospitalization, Other)
  Sender: FDA-Public Use
  Company Number: US-PFIZER INC-2020155247

PATIENT
  Age: 56 Year
  Sex: Female
  Weight: 111 kg

DRUGS (2)
  1. XELJANZ XR [Suspect]
     Active Substance: TOFACITINIB CITRATE
     Indication: Rheumatoid arthritis
     Dosage: 11 MG, 1X/DAY
     Route: 048
  2. XELJANZ XR [Suspect]
     Active Substance: TOFACITINIB CITRATE
     Indication: Back disorder

REACTIONS (10)
  - Illness [Unknown]
  - Dehydration [Recovering/Resolving]
  - Hip fracture [Unknown]
  - Gastric disorder [Recovering/Resolving]
  - Nausea [Recovering/Resolving]
  - Visual impairment [Unknown]
  - Malaise [Unknown]
  - Frequent bowel movements [Unknown]
  - Heart rate increased [Unknown]
  - Blood potassium decreased [Unknown]

NARRATIVE: CASE EVENT DATE: 20200412
